FAERS Safety Report 6612432-1 (Version None)
Quarter: 2010Q1

REPORT INFORMATION
  Report Type: 
  Country: None (occurrence: None)
  Receive Date: 20100303
  Receipt Date: 20100224
  Transmission Date: 20100710
  Serious: Yes (Other)
  Sender: FDA-Public Use
  Company Number: PHEH2009US16225

PATIENT
  Sex: Female
  Weight: 78.4 kg

DRUGS (16)
  1. FEMARA [Suspect]
     Indication: BREAST CANCER FEMALE
     Dosage: 2.5 MG, QD
     Route: 048
     Dates: start: 20060720
  2. ALPRAZOLAM [Concomitant]
     Dosage: 0.5 MG EVERY DAY BEFORE SLEEP
     Route: 048
  3. OXYCODON [Concomitant]
     Dosage: 10/325 MG PRN
     Route: 048
  4. ZOLPIDEM [Concomitant]
     Dosage: 12.5 MG, QHS EXTENDED RELEASE FORMULA
     Route: 048
  5. DICLOFENAC SODIUM [Concomitant]
     Dosage: 100 MG, QD
     Route: 048
  6. ATORVASTATIN CALCIUM [Concomitant]
     Dosage: UNK
     Route: 048
  7. CITALOPRAM HYDROBROMIDE [Concomitant]
     Dosage: 20 MG, QD
     Route: 048
  8. SIMVASTATIN [Concomitant]
     Dosage: 20 MG, QD
     Route: 048
  9. ROPINIROLE [Concomitant]
     Dosage: 1 MG, QD
     Route: 048
  10. OMEPRAZOLE [Concomitant]
     Dosage: 20 MG, BID
     Route: 048
  11. DULCOLAX [Concomitant]
     Dosage: 100 MG, BID
     Route: 048
  12. LISINOPRIL [Concomitant]
     Dosage: 10 MG, QD
     Route: 048
  13. FENTANYL-100 [Concomitant]
     Dosage: 50 MCG Q 72 HOURS
     Route: 062
  14. ASPIRIN [Concomitant]
     Dosage: 81 MG, QD
     Route: 048
  15. TERIPARATIDE [Concomitant]
     Dosage: UNK
     Route: 058
  16. AMBIEN CR [Suspect]

REACTIONS (10)
  - ATRIOVENTRICULAR BLOCK [None]
  - BLOOD PRESSURE INCREASED [None]
  - CARDIAC VALVE DISEASE [None]
  - CATHETERISATION CARDIAC [None]
  - HIP FRACTURE [None]
  - INTERNAL FIXATION OF FRACTURE [None]
  - OSTEOPOROSIS [None]
  - PAIN [None]
  - REFLUX OESOPHAGITIS [None]
  - SARCOIDOSIS [None]
